FAERS Safety Report 10088421 (Version 2)
Quarter: 2014Q3

REPORT INFORMATION
  Report Type: Spontaneous
  Country: US (occurrence: US)
  Receive Date: 20140421
  Receipt Date: 20140714
  Transmission Date: 20150326
  Serious: No
  Sender: FDA-Public Use
  Company Number: US-BIOGENIDEC-2014BI031457

PATIENT
  Age: 45 Year
  Sex: Male

DRUGS (4)
  1. TECFIDERA [Suspect]
     Active Substance: DIMETHYL FUMARATE
     Indication: PRODUCT USED FOR UNKNOWN INDICATION
     Route: 048
     Dates: start: 20140203, end: 20140210
  2. TECFIDERA [Suspect]
     Active Substance: DIMETHYL FUMARATE
     Indication: PRODUCT USED FOR UNKNOWN INDICATION
     Route: 048
     Dates: start: 20140211
  3. AMANTADINE [Concomitant]
     Active Substance: AMANTADINE
  4. VITAMIN D [Concomitant]
     Active Substance: CHOLECALCIFEROL

REACTIONS (5)
  - Drug interaction [Unknown]
  - Flushing [Unknown]
  - Nausea [Unknown]
  - Defaecation urgency [Unknown]
  - Abdominal discomfort [Unknown]
